FAERS Safety Report 4753701-X (Version None)
Quarter: 2005Q3

REPORT INFORMATION
  Report Type: 
  Country: None (occurrence: None)
  Receive Date: 20050824
  Receipt Date: 20050812
  Transmission Date: 20060218
  Serious: Yes (Other)
  Sender: FDA-Public Use
  Company Number: 12044

PATIENT
  Sex: Female

DRUGS (4)
  1. CISPLATIN [Suspect]
  2. ETOPOSIDE [Suspect]
  3. VINCRISTINE [Suspect]
  4. CYCLOPHOSPHAMIDE [Suspect]

REACTIONS (1)
  - RENAL FAILURE ACUTE [None]
